FAERS Safety Report 16205182 (Version 1)
Quarter: 2019Q2

REPORT INFORMATION
  Report Type: Spontaneous
  Country: CA (occurrence: CA)
  Receive Date: 20190416
  Receipt Date: 20190416
  Transmission Date: 20190711
  Serious: Yes (Life-Threatening, Hospitalization, Other)
  Sender: FDA-Public Use
  Company Number: CA-BRISTOL-MYERS SQUIBB COMPANY-BMS-2019-036362

PATIENT
  Age: 55 Year
  Sex: Male
  Weight: 109 kg

DRUGS (8)
  1. CLAVULIN                           /00756801/ [Concomitant]
     Active Substance: AMOXICILLIN\CLAVULANIC ACID
     Indication: PRODUCT USED FOR UNKNOWN INDICATION
     Route: 065
  2. FLORINEF ACETATE [Concomitant]
     Active Substance: FLUDROCORTISONE ACETATE
     Indication: PRODUCT USED FOR UNKNOWN INDICATION
     Route: 065
  3. FUROSEMIDE. [Concomitant]
     Active Substance: FUROSEMIDE
     Indication: PRODUCT USED FOR UNKNOWN INDICATION
     Route: 065
  4. FRAGMIN [Concomitant]
     Active Substance: DALTEPARIN SODIUM
     Indication: PRODUCT USED FOR UNKNOWN INDICATION
     Route: 042
  5. DEXILANT [Concomitant]
     Active Substance: DEXLANSOPRAZOLE
     Indication: PRODUCT USED FOR UNKNOWN INDICATION
     Route: 065
  6. YERVOY [Suspect]
     Active Substance: IPILIMUMAB
     Indication: RENAL NEOPLASM
     Dosage: 4 DOSAGE FORM, Q3WK
     Route: 042
  7. NIVOLUMAB [Suspect]
     Active Substance: NIVOLUMAB
     Indication: RENAL NEOPLASM
     Route: 042
  8. SOLYSTAT [Concomitant]
     Indication: PRODUCT USED FOR UNKNOWN INDICATION
     Route: 048

REACTIONS (8)
  - Autoimmune colitis [Unknown]
  - Chronic kidney disease [Unknown]
  - Haematochezia [Unknown]
  - Intestinal perforation [Unknown]
  - Acute kidney injury [Unknown]
  - Gastrointestinal disorder [Unknown]
  - Blood disorder [Unknown]
  - Peritonitis [Unknown]
